FAERS Safety Report 5568743-4 (Version None)
Quarter: 2007Q4

REPORT INFORMATION
  Report Type: 
  Country: None (occurrence: None)
  Receive Date: 20071220
  Receipt Date: 20061212
  Transmission Date: 20080405
  Serious: No
  Sender: FDA-Public Use
  Company Number: A0631320A

PATIENT
  Age: 80 Year
  Sex: Male

DRUGS (3)
  1. AVODART [Suspect]
     Indication: DRUG USE FOR UNKNOWN INDICATION
     Dosage: .05MG PER DAY
     Route: 048
     Dates: start: 20061001
  2. TESTOSTERONE [Concomitant]
  3. VITAMINS [Concomitant]

REACTIONS (1)
  - MOUTH CYST [None]
